FAERS Safety Report 15631115 (Version 1)
Quarter: 2018Q4

REPORT INFORMATION
  Report Type: Spontaneous
  Country: US (occurrence: US)
  Receive Date: 20181119
  Receipt Date: 20181119
  Transmission Date: 20190205
  Serious: No
  Sender: FDA-Public Use
  Company Number: US-AMGEN-USASP2018160918

PATIENT
  Age: 9 Year
  Sex: Male

DRUGS (2)
  1. NPLATE [Suspect]
     Active Substance: ROMIPLOSTIM
     Dosage: 500 MUG, UNK
     Route: 065
     Dates: start: 2018
  2. NPLATE [Suspect]
     Active Substance: ROMIPLOSTIM
     Indication: PRODUCT USED FOR UNKNOWN INDICATION
     Dosage: 500 MUG, UNK
     Route: 065
     Dates: start: 2018

REACTIONS (6)
  - Headache [Unknown]
  - Contusion [Unknown]
  - Platelet count decreased [Unknown]
  - Wrong technique in product usage process [Unknown]
  - Petechiae [Unknown]
  - Malaise [Unknown]
